FAERS Safety Report 4686901-8 (Version None)
Quarter: 2005Q2

REPORT INFORMATION
  Report Type: 
  Country: None (occurrence: None)
  Receive Date: 20050608
  Receipt Date: 20050523
  Transmission Date: 20051028
  Serious: Yes (Other)
  Sender: FDA-Public Use
  Company Number: 2005079042

PATIENT
  Age: 52 Year
  Sex: Male
  Weight: 95.2554 kg

DRUGS (4)
  1. VIAGRA [Suspect]
     Indication: ERECTILE DYSFUNCTION
     Dosage: 50 MG (50 MG, AS NECESSARY), ORAL
     Route: 048
  2. LEVITRA [Suspect]
     Indication: ILL-DEFINED DISORDER
  3. CIALIS [Suspect]
     Indication: ILL-DEFINED DISORDER
  4. ALCOHOL (ETHANOL) [Concomitant]

REACTIONS (6)
  - BRUXISM [None]
  - DRUG INEFFECTIVE [None]
  - EJACULATION DISORDER [None]
  - HAEMORRHAGE [None]
  - NERVOUSNESS [None]
  - PROSTATIC SPECIFIC ANTIGEN INCREASED [None]
